FAERS Safety Report 14239474 (Version 1)
Quarter: 2017Q4

REPORT INFORMATION
  Report Type: Spontaneous
  Country: US (occurrence: US)
  Receive Date: 20171130
  Receipt Date: 20171130
  Transmission Date: 20180321
  Serious: Yes (Death, Other)
  Sender: FDA-Public Use
  Company Number: US-ASTELLAS-2017US050248

PATIENT
  Age: 78 Year
  Sex: Male

DRUGS (1)
  1. XTANDI [Suspect]
     Active Substance: ENZALUTAMIDE
     Indication: PRODUCT USED FOR UNKNOWN INDICATION
     Dosage: UNK, UNKNOWN FREQ.
     Route: 065

REACTIONS (9)
  - Cardiac disorder [Unknown]
  - Death [Fatal]
  - Cardiac infection [Unknown]
  - Rash [Unknown]
  - Bone marrow failure [Unknown]
  - Asthenia [Unknown]
  - Device related infection [Unknown]
  - Bone marrow disorder [Unknown]
  - Sepsis [Unknown]

NARRATIVE: CASE EVENT DATE: 201707
